FAERS Safety Report 7938518-7 (Version None)
Quarter: 2011Q4

REPORT INFORMATION
  Report Type: 
  Country: None (occurrence: None)
  Receive Date: 20111123
  Receipt Date: 20111006
  Transmission Date: 20120403
  Serious: Yes (Hospitalization, Disabling)
  Sender: FDA-Public Use
  Company Number: FR-ROCHE-1013077

PATIENT
  Sex: Male
  Weight: 103 kg

DRUGS (16)
  1. PLAVIX [Concomitant]
     Dates: start: 20110428
  2. AMARYL [Concomitant]
     Dates: start: 20100301
  3. PHENOXYMETHYL PENICILLIN [Concomitant]
     Dates: start: 20090904
  4. CHLORAMBUCIL [Suspect]
     Indication: CHRONIC LYMPHOCYTIC LEUKAEMIA
     Route: 048
     Dates: start: 20111026
  5. FLUDARABINE PHOSPHATE [Concomitant]
     Dates: start: 20110623, end: 20110822
  6. MABTHERA [Suspect]
     Indication: CHRONIC LYMPHOCYTIC LEUKAEMIA
     Dates: start: 20110623, end: 20110818
  7. LANTUS [Concomitant]
     Dates: start: 20100301
  8. PREVISCAN [Concomitant]
     Dates: start: 20101215
  9. ATORVASTATIN CALCIUM [Concomitant]
     Dates: start: 20050901
  10. NOVORAPID [Concomitant]
     Dates: start: 20100301
  11. ASPIRIN [Concomitant]
     Dates: start: 20050901
  12. CYCLOPHOSPHAMIDE [Concomitant]
     Dates: start: 20110623, end: 20110822
  13. NEBIVOLOL HCL [Concomitant]
     Dates: start: 20110428
  14. NITROGLYCERIN [Concomitant]
     Dates: start: 20110215
  15. DIGOXIN [Concomitant]
     Dates: start: 20100301
  16. LERCANIDIPINE [Concomitant]
     Dates: start: 20100901

REACTIONS (1)
  - CEREBRAL ISCHAEMIA [None]
